FAERS Safety Report 17369177 (Version 1)
Quarter: 2020Q1

REPORT INFORMATION
  Report Type: Spontaneous
  Country: US (occurrence: US)
  Receive Date: 20190907
  Receipt Date: 20190907
  Transmission Date: 20200409
  Serious: No
  Sender: FDA-Public Use
  Company Number: None

PATIENT
  Age: 29 Year
  Sex: Male

DRUGS (4)
  1. THC VAPE [Suspect]
     Active Substance: .DELTA.8-TETRAHYDROCANNABINOL\DEVICE\HERBALS
  2. SUMATRIPTAN. [Concomitant]
     Active Substance: SUMATRIPTAN
  3. NAPROXEN. [Concomitant]
     Active Substance: NAPROXEN
  4. MECLIZINE [Concomitant]
     Active Substance: MECLIZINE HYDROCHLORIDE

REACTIONS (6)
  - Asthenopia [None]
  - Dizziness [None]
  - Chest discomfort [None]
  - Migraine [None]
  - Nausea [None]
  - Dyspnoea [None]
